FAERS Safety Report 22606538 (Version 1)
Quarter: 2023Q2

REPORT INFORMATION
  Report Type: Spontaneous
  Country: US (occurrence: US)
  Receive Date: 20230615
  Receipt Date: 20230615
  Transmission Date: 20230722
  Serious: Yes (Hospitalization, Other)
  Sender: FDA-Public Use
  Company Number: US-002147023-NVSC2023US135717

PATIENT
  Sex: Male

DRUGS (2)
  1. PLUVICTO [Suspect]
     Active Substance: LUTETIUM LU-177 VIPIVOTIDE TETRAXETAN
     Indication: Prostate cancer
     Dosage: 200 MCI, OTHER (FIRST DOSE/ EVERY 6 WEEKS AS PER PI)
     Route: 042
     Dates: start: 20230612
  2. PLUVICTO [Suspect]
     Active Substance: LUTETIUM LU-177 VIPIVOTIDE TETRAXETAN
     Dosage: 1000 MBQ, OTHER (EVERY 6 WEEKS AS PER PI)
     Route: 042
     Dates: start: 20230612

REACTIONS (1)
  - Pneumonia [Recovering/Resolving]
